FAERS Safety Report 11850920 (Version 1)
Quarter: 2015Q4

REPORT INFORMATION
  Report Type: Spontaneous
  Country: US (occurrence: US)
  Receive Date: 20151218
  Receipt Date: 20151218
  Transmission Date: 20160305
  Serious: No
  Sender: FDA-Public Use
  Company Number: US-JNJFOC-20150303385

PATIENT
  Age: 62 Year
  Sex: Female
  Weight: 57.15 kg

DRUGS (10)
  1. PROVEX CV [Concomitant]
     Indication: CARDIAC DISORDER
     Route: 065
  2. OTHER THERAPEUTIC PRODUCTS [Concomitant]
     Active Substance: UNSPECIFIED INGREDIENT
     Indication: PROPHYLAXIS
     Route: 065
  3. ALL OTHER NON-THERAPEUTIC PRODUCTS [Concomitant]
     Active Substance: UNSPECIFIED INGREDIENT
     Indication: MEMORY IMPAIRMENT
     Route: 065
  4. CALCIUM VITAFIT [Concomitant]
     Indication: ROUTINE HEALTH MAINTENANCE
     Route: 065
  5. ALL OTHER THERAPEUTIC PRODUCTS [Concomitant]
     Active Substance: UNSPECIFIED INGREDIENT
     Indication: ARTHROPATHY
     Route: 065
  6. WOMENS ROGAINE UNSCENTED [Suspect]
     Active Substance: MINOXIDIL
     Route: 061
  7. WOMENS ROGAINE UNSCENTED [Suspect]
     Active Substance: MINOXIDIL
     Indication: ALOPECIA
     Dosage: HALF OF A CAP
     Route: 061
     Dates: start: 20150224, end: 20150301
  8. ALL OTHER THERAPEUTIC PRODUCTS [Concomitant]
     Active Substance: UNSPECIFIED INGREDIENT
     Indication: MEMORY IMPAIRMENT
     Route: 065
  9. REPLENIX [Concomitant]
     Indication: ARTHROPATHY
     Route: 065
  10. NUTRAVIEW [Concomitant]
     Indication: VISUAL IMPAIRMENT
     Route: 065

REACTIONS (1)
  - Skin irritation [Recovering/Resolving]

NARRATIVE: CASE EVENT DATE: 20150301
